FAERS Safety Report 13739726 (Version 1)
Quarter: 2017Q3

REPORT INFORMATION
  Report Type: Spontaneous
  Country: MX (occurrence: MX)
  Receive Date: 20170710
  Receipt Date: 20170710
  Transmission Date: 20171127
  Serious: Yes (Other)
  Sender: FDA-Public Use
  Company Number: PHHY2013MX127089

PATIENT
  Age: 93 Year
  Sex: Female

DRUGS (7)
  1. PIASCLEDINE                        /01305801/ [Concomitant]
     Active Substance: AVOCADO OIL\SOYBEAN OIL
     Indication: RHEUMATIC DISORDER
     Dosage: 1 UKN, OCCASIONALY
     Dates: start: 2010
  2. HYDERGIN [Suspect]
     Active Substance: ERGOLOID MESYLATES
     Indication: MUSCLE SPASMS
     Dosage: 1 TABLET (1.5 MG), DAILY
     Route: 048
     Dates: start: 2012, end: 201306
  3. HYDERGIN [Suspect]
     Active Substance: ERGOLOID MESYLATES
     Indication: OFF LABEL USE
     Dosage: 1 TABLET (4.5 MG), UNK
     Dates: start: 201306, end: 201311
  4. TYLENOL [Concomitant]
     Active Substance: ACETAMINOPHEN
     Indication: PAIN
     Dosage: 1 UKN, OCCASIONALY
     Dates: start: 2012
  5. DAFLON (DIOSMIN/HESPERIDIN) [Concomitant]
     Active Substance: DIOSMIN\HESPERIDIN
     Indication: CARDIOVASCULAR DISORDER
     Dosage: 1 UKN, DAILY
     Dates: start: 1998
  6. CERVILANE [Concomitant]
     Indication: CEREBRAL DISORDER
     Dosage: 1 UKN, DAILY
  7. SELOKEN [Concomitant]
     Active Substance: METOPROLOL
     Indication: HYPERTENSION
     Dosage: 1 UKN, DAILY

REACTIONS (5)
  - Restlessness [Not Recovered/Not Resolved]
  - Headache [Not Recovered/Not Resolved]
  - Anxiety [Not Recovered/Not Resolved]
  - Blood pressure increased [Not Recovered/Not Resolved]
  - Nervousness [Not Recovered/Not Resolved]

NARRATIVE: CASE EVENT DATE: 201311
